FAERS Safety Report 4769837-3 (Version None)
Quarter: 2005Q3

REPORT INFORMATION
  Report Type: 
  Country: None (occurrence: None)
  Receive Date: 20050912
  Receipt Date: 20050616
  Transmission Date: 20060218
  Serious: No
  Sender: FDA-Public Use
  Company Number: 2005-00636

PATIENT
  Age: 72 Year
  Sex: Male
  Weight: 68 kg

DRUGS (8)
  1. VELCADE [Suspect]
     Indication: MANTLE CELL LYMPHOMA
     Dosage: 2.30 MG, IV BOLUS
     Route: 040
     Dates: start: 20050222, end: 20050322
  2. GLUCOPHAGE [Concomitant]
  3. GLIPIZIDE [Concomitant]
  4. ANZEMET (DOLASETRON MESILATE) [Concomitant]
  5. IBUPROFEN [Concomitant]
  6. MULTIVITAMIN [Concomitant]
  7. VITAMIN C (ASCORBIC ACID) [Concomitant]
  8. ALLOPURINOL [Concomitant]

REACTIONS (4)
  - BLOOD GLUCOSE DECREASED [None]
  - DIARRHOEA [None]
  - DIZZINESS [None]
  - HYPERHIDROSIS [None]
